FAERS Safety Report 19583930 (Version 1)
Quarter: 2021Q3

REPORT INFORMATION
  Report Type: Spontaneous
  Country: CA (occurrence: CA)
  Receive Date: 20210720
  Receipt Date: 20210720
  Transmission Date: 20211014
  Serious: Yes (Life-Threatening)
  Sender: FDA-Public Use
  Company Number: CA-PFIZER INC-2021839940

PATIENT
  Age: 3 Week
  Sex: Male
  Weight: 4 kg

DRUGS (3)
  1. FENTANYL. [Concomitant]
     Active Substance: FENTANYL
  2. PROSTIN [Suspect]
     Active Substance: ALPROSTADIL
     Indication: COARCTATION OF THE AORTA
     Dosage: 2.4 UG, 1 EVERY 1 HOURS
     Route: 041
  3. TRAVASOL [Concomitant]
     Active Substance: ALANINE\ARGININE\GLYCINE\HISTIDINE\ISOLEUCINE\LEUCINE\LYSINE HYDROCHLORIDE\METHIONINE\PHENYLALANINE\PROLINE\SERINE\THREONINE\TRYPTOPHAN\TYROSINE\VALINE

REACTIONS (2)
  - Drug ineffective [Recovered/Resolved]
  - Patent ductus arteriosus [Recovered/Resolved]
